FAERS Safety Report 16039035 (Version 8)
Quarter: 2020Q3

REPORT INFORMATION
  Report Type: Spontaneous
  Country: FR (occurrence: FR)
  Receive Date: 20190306
  Receipt Date: 20200824
  Transmission Date: 20201102
  Serious: Yes (Hospitalization, Congenital Anomaly, Other)
  Sender: FDA-Public Use
  Company Number: PHHY2019FR047075

PATIENT
  Age: 4 Day
  Sex: Male
  Weight: 2.03 kg

DRUGS (21)
  1. PREDNISONE. [Interacting]
     Active Substance: PREDNISONE
     Indication: FOETAL EXPOSURE DURING PREGNANCY
     Dosage: MATERNAL DOSE: 40 MG PER DAY FROM THE DIAGNOSIS UNTIL 1 WEEK AFTER THE FIRST ABVD
     Route: 064
     Dates: end: 201711
  2. BLEOMYCIN [Interacting]
     Active Substance: BLEOMYCIN SULFATE
     Dosage: 10 MILLIGRAM/SQ. METER, QD
     Route: 064
     Dates: start: 20171108
  3. DEXAMETHASONE. [Interacting]
     Active Substance: DEXAMETHASONE
     Indication: FOETAL EXPOSURE DURING PREGNANCY
     Dosage: 10 MG (ON DAY1 AND DAY 15 OF THERAPY)
     Route: 064
     Dates: start: 20171108
  4. AMOXICILLIN. [Interacting]
     Active Substance: AMOXICILLIN
     Indication: FOETAL EXPOSURE DURING PREGNANCY
     Dosage: MATERNAL DOSE: UNK
     Route: 064
  5. GLUCOSE [Suspect]
     Active Substance: DEXTROSE
     Indication: FOETAL EXPOSURE DURING PREGNANCY
     Dosage: 250 ML (USED AS A VEHICLE FOR DACARBAZINE DRUG ADMINISTRATION)
     Route: 064
     Dates: start: 20171108
  6. DACARBAZINE. [Interacting]
     Active Substance: DACARBAZINE
     Dosage: MATERNAL DOSE: 730 MG, QD (AT DAY 1 AND 15 OF A 28?DAY CYCLE, CYCLICAL)(POWDER FOR INFUSION)
     Route: 064
  7. VALACICLOVIR [Interacting]
     Active Substance: VALACYCLOVIR HYDROCHLORIDE
     Indication: FOETAL EXPOSURE DURING PREGNANCY
     Dosage: 500 MG, QD
     Route: 064
     Dates: start: 2017
  8. DOXORUBICIN [Interacting]
     Active Substance: DOXORUBICIN
     Dosage: 25 MILLIGRAM/SQ. METER, QD
     Route: 064
     Dates: start: 20171108
  9. ONDANSETRON [Suspect]
     Active Substance: ONDANSETRON
     Indication: FOETAL EXPOSURE DURING PREGNANCY
     Dosage: 16 MG, QD
     Route: 064
     Dates: start: 20171108, end: 201711
  10. PREDNISONE. [Interacting]
     Active Substance: PREDNISONE
     Dosage: MATERNAL DOSE: 80 MG, QD
     Route: 064
     Dates: start: 2017
  11. BLEOMYCIN [Interacting]
     Active Substance: BLEOMYCIN SULFATE
     Indication: FOETAL EXPOSURE DURING PREGNANCY
     Dosage: MATERNAL DOSE: 19.2 MG, UNK
     Route: 064
  12. GLUCOSE [Suspect]
     Active Substance: DEXTROSE
     Dosage: 20 MILLILITER, QD
     Route: 064
     Dates: start: 20171108
  13. LANSOPRAZOLE. [Interacting]
     Active Substance: LANSOPRAZOLE
     Indication: FOETAL EXPOSURE DURING PREGNANCY
     Dosage: 30 MILLIGRAM, QD
     Route: 064
     Dates: start: 2017
  14. DOXORUBICIN [Interacting]
     Active Substance: DOXORUBICIN
     Indication: FOETAL EXPOSURE DURING PREGNANCY
     Dosage: MATERNAL DOSE: 48 MG
     Route: 064
  15. VINBLASTINE [Interacting]
     Active Substance: VINBLASTINE
     Indication: FOETAL EXPOSURE DURING PREGNANCY
     Dosage: MATERNAL DOSE: 10 MG, UNK
     Route: 064
  16. ONDANSETRON [Interacting]
     Active Substance: ONDANSETRON
     Dosage: MATERNAL DOSE: 8 MG, BID
     Route: 064
     Dates: start: 2017, end: 201711
  17. DACARBAZINE. [Interacting]
     Active Substance: DACARBAZINE
     Indication: FOETAL EXPOSURE DURING PREGNANCY
     Dosage: 375 MG/M2, QD
     Route: 064
     Dates: start: 20171108
  18. VINBLASTINE [Interacting]
     Active Substance: VINBLASTINE
     Dosage: 5 MG/M2 (IN 20 ML NACL ON DAY 1 AND DAY 15 OF THERAPY)
     Route: 064
     Dates: start: 20171108
  19. ENOXAPARIN [Interacting]
     Active Substance: ENOXAPARIN
     Indication: FOETAL EXPOSURE DURING PREGNANCY
     Dosage: MATERNAL DOSE: 4000 IU, QD
     Route: 064
     Dates: start: 2017
  20. SODIUM CHLORIDE. [Suspect]
     Active Substance: SODIUM CHLORIDE
     Indication: FOETAL EXPOSURE DURING PREGNANCY
     Dosage: 20 MILLILITER, USED AS A VEHICLE FOR VINBLASTIN DRUG ADMINISTRATION
     Route: 064
     Dates: start: 20171108
  21. CAFFEINE. [Suspect]
     Active Substance: CAFFEINE
     Indication: FOETAL EXPOSURE DURING PREGNANCY
     Dosage: UNK
     Route: 064

REACTIONS (8)
  - Foetal exposure during pregnancy [Recovered/Resolved]
  - Ejection fraction decreased [Recovered/Resolved]
  - Off label use [Unknown]
  - Premature baby [Unknown]
  - Drug interaction [Recovered/Resolved]
  - Troponin increased [Recovered/Resolved]
  - Cardiac dysfunction [Recovered/Resolved]
  - Cardiotoxicity [Recovered/Resolved]

NARRATIVE: CASE EVENT DATE: 2017
